FAERS Safety Report 23580445 (Version 1)
Quarter: 2024Q1

REPORT INFORMATION
  Report Type: Spontaneous
  Country: US (occurrence: US)
  Receive Date: 20240229
  Receipt Date: 20240229
  Transmission Date: 20240410
  Serious: Yes (Other)
  Sender: FDA-Public Use
  Company Number: US-BRISTOL-MYERS SQUIBB COMPANY-2024-032981

PATIENT
  Age: 73 Year
  Sex: Male
  Weight: 60.8 kg

DRUGS (1)
  1. REVLIMID [Suspect]
     Active Substance: LENALIDOMIDE
     Indication: Plasma cell myeloma
     Dosage: EVERY 28 DAYS CONTINUOUS
     Route: 048
     Dates: start: 20140107, end: 20160415

REACTIONS (1)
  - Plasma cell myeloma [Unknown]
